FAERS Safety Report 13277617 (Version 1)
Quarter: 2017Q1

REPORT INFORMATION
  Report Type: Spontaneous
  Country: DE (occurrence: DE)
  Receive Date: 20170228
  Receipt Date: 20170228
  Transmission Date: 20170428
  Serious: Yes (Other)
  Sender: FDA-Public Use
  Company Number: DE-TEVA-741046GER

PATIENT
  Age: 0 Year
  Sex: Female
  Weight: 2.63 kg

DRUGS (5)
  1. QUETIAPINE. [Suspect]
     Active Substance: QUETIAPINE
     Indication: DEPRESSION
     Dosage: 25 MILLIGRAM DAILY;
     Route: 064
     Dates: start: 20160101, end: 20161014
  2. MINPROSTIN E2 [Concomitant]
     Indication: LABOUR INDUCTION
     Route: 064
     Dates: start: 20161014, end: 20161014
  3. VENLAFAXINE [Suspect]
     Active Substance: VENLAFAXINE HYDROCHLORIDE
     Indication: DEPRESSION
     Dosage: 150 MILLIGRAM DAILY;
     Route: 064
     Dates: start: 20160101, end: 20161014
  4. VENLAFAXINE [Suspect]
     Active Substance: VENLAFAXINE HYDROCHLORIDE
     Indication: BORDERLINE PERSONALITY DISORDER
  5. QUETIAPINE. [Suspect]
     Active Substance: QUETIAPINE
     Indication: BORDERLINE PERSONALITY DISORDER

REACTIONS (6)
  - Meconium in amniotic fluid [Unknown]
  - Hypoglycaemia neonatal [Recovered/Resolved]
  - Neonatal infection [Unknown]
  - Foetal exposure during pregnancy [Unknown]
  - Small for dates baby [Recovering/Resolving]
  - Foetal heart rate deceleration abnormality [Unknown]

NARRATIVE: CASE EVENT DATE: 2016
